FAERS Safety Report 11796975 (Version 1)
Quarter: 2015Q4

REPORT INFORMATION
  Report Type: Report from Study
  Country: US (occurrence: US)
  Receive Date: 20151203
  Receipt Date: 20151203
  Transmission Date: 20160305
  Serious: Yes (Other)
  Sender: FDA-Public Use
  Company Number: US-RB-017912-10

PATIENT
  Age: 44 Year
  Sex: Male

DRUGS (2)
  1. SUBOXONE [Suspect]
     Active Substance: BUPRENORPHINE HYDROCHLORIDE\NALOXONE HYDROCHLORIDE
     Indication: PRODUCT USED FOR UNKNOWN INDICATION
     Dosage: DOSING INFORMATION UNKNOWN / SUBLINGUAL FILM
     Route: 065
  2. SUBOXONE [Suspect]
     Active Substance: BUPRENORPHINE HYDROCHLORIDE\NALOXONE HYDROCHLORIDE
     Indication: PRODUCT USED FOR UNKNOWN INDICATION
     Dosage: UNKNOWN
     Route: 065

REACTIONS (7)
  - Nausea [Not Recovered/Not Resolved]
  - Concussion [Not Recovered/Not Resolved]
  - Drug dependence [Not Recovered/Not Resolved]
  - Therapy cessation [Recovered/Resolved]
  - Fall [Recovered/Resolved]
  - Hyperhidrosis [Not Recovered/Not Resolved]
  - Hallucination [Not Recovered/Not Resolved]
